FAERS Safety Report 8205024-4 (Version None)
Quarter: 2012Q1

REPORT INFORMATION
  Report Type: 
  Country: None (occurrence: None)
  Receive Date: 20120309
  Receipt Date: 20120227
  Transmission Date: 20120608
  Serious: Yes (Hospitalization, Other)
  Sender: FDA-Public Use
  Company Number: 2012P1008483

PATIENT
  Age: 52 Year
  Sex: Male

DRUGS (2)
  1. HYDROMORPHONE HCL [Suspect]
     Indication: BACK PAIN
     Dosage: 12 MG; QD; INTH     12MG;X1; INTH   2.5 MG; QD; INTH
     Route: 037
  2. MORPHINE [Suspect]
     Dosage: 10 MG;   ;IV
     Route: 042

REACTIONS (8)
  - PAIN [None]
  - BURNING SENSATION [None]
  - PAIN IN EXTREMITY [None]
  - NEURALGIA [None]
  - NAUSEA [None]
  - MEDICAL DEVICE COMPLICATION [None]
  - MUSCLE SPASMS [None]
  - TOXICITY TO VARIOUS AGENTS [None]
